FAERS Safety Report 5446362-8 (Version None)
Quarter: 2007Q3

REPORT INFORMATION
  Report Type: 
  Country: None (occurrence: None)
  Receive Date: 20070907
  Receipt Date: 20070903
  Transmission Date: 20080115
  Serious: Yes (Life-Threatening, Hospitalization)
  Sender: FDA-Public Use
  Company Number: B0484435A

PATIENT
  Age: 86 Year
  Sex: Male
  Weight: 100 kg

DRUGS (21)
  1. ARIXTRA [Suspect]
     Indication: THROMBOSIS PROPHYLAXIS
     Dosage: 2.5MG PER DAY
     Route: 058
     Dates: start: 20070801, end: 20070808
  2. LOXONIN [Suspect]
     Indication: DRUG USE FOR UNKNOWN INDICATION
     Dosage: 60MG THREE TIMES PER DAY
     Route: 048
     Dates: start: 20070801, end: 20070813
  3. DASEN [Concomitant]
     Dosage: 30MG PER DAY
     Route: 048
     Dates: start: 20070801, end: 20070814
  4. KELNAC [Concomitant]
     Indication: GASTRITIS
     Dosage: 240MG PER DAY
     Route: 048
     Dates: start: 20070801, end: 20070814
  5. VOLTAREN [Concomitant]
     Dosage: 50MG PER DAY
     Route: 054
     Dates: start: 20070801, end: 20070801
  6. MAGLAX [Concomitant]
     Indication: CONSTIPATION
     Dosage: 1980MG PER DAY
     Route: 048
     Dates: start: 20070805, end: 20070813
  7. EVAMYL [Concomitant]
     Indication: INSOMNIA
     Dosage: 1MG PER DAY
     Route: 048
     Dates: start: 20070730, end: 20070813
  8. CEFZON [Concomitant]
     Indication: INFECTION PROPHYLAXIS
     Dosage: 300MG PER DAY
     Route: 048
     Dates: start: 20070809, end: 20070812
  9. UNKNOWN DRUG [Concomitant]
     Indication: CONSTIPATION
     Dosage: 10MG PER DAY
     Route: 054
     Dates: start: 20070814, end: 20070814
  10. CEFMETAZON [Concomitant]
     Indication: INFECTION PROPHYLAXIS
     Dosage: 2G PER DAY
     Route: 042
     Dates: start: 20070731, end: 20070804
  11. FIRSTCIN [Concomitant]
     Indication: INFECTION PROPHYLAXIS
     Dosage: 2G PER DAY
     Route: 042
     Dates: start: 20070805, end: 20070808
  12. ACTOS [Concomitant]
     Indication: DIABETES MELLITUS
     Dosage: 15MG PER DAY
     Route: 048
     Dates: end: 20070815
  13. NORVASC [Concomitant]
     Indication: HYPERTENSION
     Dosage: 5MG PER DAY
     Route: 048
     Dates: end: 20070815
  14. OLMETEC [Concomitant]
     Indication: HYPERTENSION
     Dosage: 20MG PER DAY
     Route: 048
     Dates: end: 20070815
  15. LUPRAC [Concomitant]
     Indication: POLYURIA
     Dosage: 8MG PER DAY
     Route: 048
     Dates: end: 20070815
  16. UNKNOWN DRUG [Concomitant]
     Indication: POLYURIA
     Dosage: 25MG PER DAY
     Route: 048
     Dates: end: 20070815
  17. ALLOPURINOL [Concomitant]
     Dosage: 100MG PER DAY
     Route: 048
     Dates: end: 20070815
  18. UNKNOWN DRUG [Concomitant]
     Dosage: 400MG PER DAY
     Route: 048
     Dates: end: 20070815
  19. UNKNOWN DRUG [Concomitant]
     Indication: DIABETES MELLITUS
     Dosage: 80MG PER DAY
     Route: 048
     Dates: end: 20070815
  20. UNKNOWN DRUG [Concomitant]
     Dosage: 150MG PER DAY
     Route: 048
     Dates: end: 20070815
  21. ANTIPHLOGISTIC [Concomitant]

REACTIONS (11)
  - ABDOMINAL TENDERNESS [None]
  - ANOREXIA [None]
  - FAECES DISCOLOURED [None]
  - GASTRIC ULCER [None]
  - MELAENA [None]
  - NAUSEA [None]
  - PALLOR [None]
  - PERIPHERAL COLDNESS [None]
  - SHOCK HAEMORRHAGIC [None]
  - STOMACH DISCOMFORT [None]
  - UPPER GASTROINTESTINAL HAEMORRHAGE [None]
